FAERS Safety Report 5106922-0 (Version None)
Quarter: 2006Q3

REPORT INFORMATION
  Report Type: 
  Country: None (occurrence: None)
  Receive Date: 20060913
  Receipt Date: 20060824
  Transmission Date: 20061208
  Serious: Yes (Death)
  Sender: FDA-Public Use
  Company Number: NL200608005174

PATIENT
  Age: 72 Year
  Sex: Female

DRUGS (9)
  1. SOMATROPIN (SOMATROPIN)VIAL [Suspect]
     Indication: GROWTH HORMONE DEFICIENCY
     Dosage: 0.2 MG, DAILY (1/D), SUBCUTANEOUS
     Route: 058
     Dates: start: 20021029, end: 20051108
  2. THYRAX (LEVOTHYROXINE) [Concomitant]
  3. HYDROCORTISONE [Concomitant]
  4. MINRIN (DESMOPRESSIN) [Concomitant]
  5. DHEA (PRASTERONE) [Concomitant]
  6. METOPROLOL [Concomitant]
  7. CAMCOLIT (LITHIUM CARBONATE) [Concomitant]
  8. STILNOX /FRA/ (ZOLPIDEM) [Concomitant]
  9. VITAMIN D [Concomitant]

REACTIONS (1)
  - DEATH [None]
